FAERS Safety Report 5478041-5 (Version None)
Quarter: 2007Q4

REPORT INFORMATION
  Report Type: 
  Country: None (occurrence: None)
  Receive Date: 20071005
  Receipt Date: 20071001
  Transmission Date: 20080405
  Serious: Yes (Death)
  Sender: FDA-Public Use
  Company Number: US-BRISTOL-MYERS SQUIBB COMPANY-13925391

PATIENT
  Age: 61 Year
  Sex: Female

DRUGS (4)
  1. ETOPOSIDE [Suspect]
     Indication: NON-HODGKIN'S LYMPHOMA
     Route: 042
     Dates: start: 20070806, end: 20070809
  2. NEUPOGEN [Suspect]
     Route: 058
  3. SOLU-MEDROL [Concomitant]
     Indication: PREMEDICATION
     Route: 042
  4. ZOFRAN [Concomitant]
     Indication: PREMEDICATION
     Route: 042

REACTIONS (1)
  - DEATH [None]
